FAERS Safety Report 10234680 (Version 1)
Quarter: 2014Q2

REPORT INFORMATION
  Report Type: Spontaneous
  Country: US (occurrence: US)
  Receive Date: 20140613
  Receipt Date: 20140613
  Transmission Date: 20141212
  Serious: Yes (Other)
  Sender: FDA-Public Use
  Company Number: US-BRISTOL-MYERS SQUIBB COMPANY-20968475

PATIENT
  Age: 66 Year
  Sex: Female
  Weight: 74.7 kg

DRUGS (3)
  1. COUMADIN [Suspect]
     Indication: DEEP VEIN THROMBOSIS
     Dosage: DOSE INCREASED TO 20 MG
     Dates: start: 20140411
  2. SIMEPREVIR [Interacting]
     Indication: HEPATITIS C
     Dosage: CAPSULE
     Route: 048
     Dates: start: 20140404
  3. SOFOSBUVIR [Interacting]
     Indication: HEPATITIS C
     Route: 048
     Dates: start: 20140404

REACTIONS (4)
  - Drug resistance [Unknown]
  - International normalised ratio abnormal [Unknown]
  - Drug interaction [Unknown]
  - Off label use [Unknown]
